FAERS Safety Report 9668457 (Version 1)
Quarter: 2013Q4

REPORT INFORMATION
  Report Type: Spontaneous
  Country: US (occurrence: US)
  Receive Date: 20131105
  Receipt Date: 20131105
  Transmission Date: 20140711
  Serious: Yes (Hospitalization, Other)
  Sender: FDA-Public Use
  Company Number: US-AMGEN-USASP2013076616

PATIENT
  Age: 51 Year
  Sex: Female

DRUGS (5)
  1. ARANESP [Suspect]
     Indication: PRODUCT USED FOR UNKNOWN INDICATION
     Dosage: UNK UNK, Q2WK
     Route: 065
  2. EPOETIN [Concomitant]
     Route: 065
  3. DILANTIN                           /00017401/ [Concomitant]
     Dosage: 100 MG, BID
  4. TOPAMAX [Concomitant]
  5. BENADRYL                           /00000402/ [Concomitant]

REACTIONS (6)
  - Convulsion [Unknown]
  - Blood pressure increased [Not Recovered/Not Resolved]
  - Blood count abnormal [Unknown]
  - Tongue biting [Unknown]
  - Memory impairment [Unknown]
  - Abnormal behaviour [Unknown]
